FAERS Safety Report 5715963-1 (Version None)
Quarter: 2008Q2

REPORT INFORMATION
  Report Type: 
  Country: None (occurrence: None)
  Receive Date: 20080422
  Receipt Date: 20080409
  Transmission Date: 20081010
  Serious: Yes (Hospitalization)
  Sender: FDA-Public Use
  Company Number: 230109J08BRA

PATIENT
  Age: 43 Year
  Sex: Female

DRUGS (4)
  1. REBIF [Suspect]
     Indication: MULTIPLE SCLEROSIS
     Dosage: 44 MCG, 3 IN 1 WEEKS
     Dates: start: 20080214
  2. HIDANTAL (PHENYTOIN /00017401/) [Concomitant]
  3. GARDENAL (PHENOBARBITAL /00023201/) [Concomitant]
  4. PAMELOR [Concomitant]

REACTIONS (2)
  - ABDOMINAL PAIN [None]
  - CONVULSION [None]
